FAERS Safety Report 8796793 (Version 5)
Quarter: 2013Q1

REPORT INFORMATION
  Report Type: Spontaneous
  Country: US (occurrence: US)
  Receive Date: 20120919
  Receipt Date: 20130108
  Transmission Date: 20140127
  Serious: Yes (Hospitalization, Disabling, Other)
  Sender: FDA-Public Use
  Company Number: US-009507513-1201USA00246

PATIENT
  Sex: 0

DRUGS (3)
  1. FOSAMAX [Suspect]
     Indication: OSTEOPOROSIS
     Dosage: 70 MG, QW
     Route: 048
     Dates: start: 2002
  2. CALCIUM (UNSPECIFIED) (+) VITAMIN D (UNSPECIFIED) [Concomitant]
     Dosage: 2 TABS QD
     Dates: start: 1997
  3. ALENDRONATE SODIUM [Suspect]
     Dosage: 70 MG, UNK
     Route: 048

REACTIONS (29)
  - Femur fracture [Unknown]
  - Intramedullary rod insertion [Unknown]
  - Ankle fracture [Unknown]
  - Internal fixation of fracture [Unknown]
  - Anaemia [Recovering/Resolving]
  - Breast cancer [Unknown]
  - Mastectomy [Unknown]
  - Breast reconstruction [Unknown]
  - Atrial fibrillation [Unknown]
  - Urinary tract infection [Unknown]
  - Serratia infection [Unknown]
  - Duodenal ulcer [Unknown]
  - Hypertension [Unknown]
  - Osteopenia [Unknown]
  - Toxicity to various agents [Unknown]
  - Anticoagulant therapy [Not Recovered/Not Resolved]
  - Depression [Unknown]
  - Insomnia [Unknown]
  - Pain [Not Recovered/Not Resolved]
  - Artificial crown procedure [Unknown]
  - Increased tendency to bruise [Unknown]
  - Visual acuity reduced [Unknown]
  - Bursitis [Unknown]
  - Hand fracture [Unknown]
  - Contusion [Unknown]
  - Constipation [Unknown]
  - Vulvovaginal mycotic infection [Unknown]
  - Coronary artery disease [Unknown]
  - Gastrointestinal haemorrhage [Unknown]
